FAERS Safety Report 10650033 (Version 1)
Quarter: 2014Q4

REPORT INFORMATION
  Report Type: Spontaneous
  Country: GB (occurrence: GB)
  Receive Date: 20141212
  Receipt Date: 20141212
  Transmission Date: 20150529
  Serious: Yes (Hospitalization, Other)
  Sender: FDA-Public Use
  Company Number: GB-PFIZER INC-2014338271

PATIENT
  Age: 18 Year
  Sex: Male

DRUGS (1)
  1. LUSTRAL [Suspect]
     Active Substance: SERTRALINE HYDROCHLORIDE
     Indication: ANXIETY
     Dosage: 50 MG, UNK

REACTIONS (4)
  - Feeling abnormal [Unknown]
  - Loss of consciousness [Unknown]
  - Hypertonia [Unknown]
  - Mydriasis [Unknown]
